FAERS Safety Report 20445154 (Version 2)
Quarter: 2022Q3

REPORT INFORMATION
  Report Type: Spontaneous
  Country: GR (occurrence: GR)
  Receive Date: 20220208
  Receipt Date: 20220903
  Transmission Date: 20221027
  Serious: Yes (Life-Threatening, Hospitalization, Other)
  Sender: FDA-Public Use
  Company Number: GR-MLMSERVICE-20220127-3335570-1

PATIENT
  Age: 66 Year
  Sex: Female

DRUGS (5)
  1. CAPECITABINE [Suspect]
     Active Substance: CAPECITABINE
     Indication: Adenocarcinoma of colon
     Dosage: PO CAPECITABINE 1500 MG BD FOR 2 WEEKS AFTER OXALIPLATIN ADMINISTRATION
     Route: 048
  2. CAPECITABINE [Suspect]
     Active Substance: CAPECITABINE
     Dosage: 1000 MG, BID
     Route: 048
  3. OXALIPLATIN [Suspect]
     Active Substance: OXALIPLATIN
     Indication: Adenocarcinoma of colon
     Dosage: 130 MG/M2 EVERY THREE WEEKS
     Route: 042
  4. OXALIPLATIN [Suspect]
     Active Substance: OXALIPLATIN
     Dosage: 130 MG/M2 EVERY THREE WEEKS
     Route: 042
  5. LITHIUM [Concomitant]
     Active Substance: LITHIUM
     Indication: Bipolar disorder
     Dosage: UNK

REACTIONS (17)
  - Enterocolitis [Recovering/Resolving]
  - Pyrexia [Recovering/Resolving]
  - Diarrhoea [Recovering/Resolving]
  - Peripheral coldness [Recovering/Resolving]
  - Mental status changes [Recovering/Resolving]
  - Lactic acidosis [Recovering/Resolving]
  - Hypomagnesaemia [Recovering/Resolving]
  - Hyponatraemia [Recovering/Resolving]
  - Hypokalaemia [Recovering/Resolving]
  - Toxicity to various agents [Recovering/Resolving]
  - Gastrointestinal oedema [Recovering/Resolving]
  - Hyperaemia [Recovering/Resolving]
  - Hypotension [Recovering/Resolving]
  - Pancytopenia [Recovering/Resolving]
  - Myelosuppression [Recovering/Resolving]
  - Candida infection [Unknown]
  - Pseudomonas infection [Unknown]
